FAERS Safety Report 5052609-2 (Version None)
Quarter: 2006Q3

REPORT INFORMATION
  Report Type: 
  Country: None (occurrence: None)
  Receive Date: 20060717
  Receipt Date: 20060711
  Transmission Date: 20061208
  Serious: Yes (Life-Threatening, Hospitalization)
  Sender: FDA-Public Use
  Company Number: ES-GLAXOSMITHKLINE-B0430945A

PATIENT
  Age: 36 Year
  Sex: Male

DRUGS (2)
  1. COMBIVIR [Suspect]
     Indication: DRUG USE FOR UNKNOWN INDICATION
     Route: 048
     Dates: start: 20050901, end: 20051215
  2. KALETRA [Suspect]
     Indication: DRUG USE FOR UNKNOWN INDICATION
     Dosage: 3CAP TWICE PER DAY
     Route: 048
     Dates: start: 20050901, end: 20051215

REACTIONS (3)
  - ANAEMIA [None]
  - ASTHENIA [None]
  - OEDEMA [None]
